FAERS Safety Report 4446710-1 (Version None)
Quarter: 2004Q3

REPORT INFORMATION
  Report Type: 
  Country: None (occurrence: None)
  Receive Date: 20040908
  Receipt Date: 20040901
  Transmission Date: 20050211
  Serious: Yes (Life-Threatening, Hospitalization)
  Sender: FDA-Public Use
  Company Number: K200401329

PATIENT
  Age: 38 Year
  Sex: Male

DRUGS (3)
  1. KEMADRIN (PROCYCLIDINE) TABLET, 10MG [Suspect]
     Indication: EXTRAPYRAMIDAL DISORDER
     Dosage: 10 MG, ORAL
     Route: 048
     Dates: start: 20040801, end: 20040810
  2. CLOZAPINE [Suspect]
     Indication: PSYCHOTIC DISORDER
     Dosage: 375 MG, ORAL
     Route: 048
     Dates: start: 20040717
  3. HYOSCINE HYDROBROMIDE (HYOSCINE HYDROBROMIDE) [Suspect]

REACTIONS (3)
  - CONSTIPATION [None]
  - FAECALOMA [None]
  - INADEQUATE DIET [None]
